FAERS Safety Report 25330983 (Version 1)
Quarter: 2025Q2

REPORT INFORMATION
  Report Type: Spontaneous
  Country: US (occurrence: US)
  Receive Date: 20250519
  Receipt Date: 20250519
  Transmission Date: 20250717
  Serious: Yes (Hospitalization)
  Sender: SANOFI AVENTIS
  Company Number: US-SA-2025SA141983

PATIENT

DRUGS (1)
  1. SUTIMLIMAB-JOME [Suspect]
     Active Substance: SUTIMLIMAB-JOME
     Dosage: 6500 MG, QOW
     Route: 065
     Dates: start: 20240912, end: 20250424

REACTIONS (1)
  - Anaemia [Unknown]
